FAERS Safety Report 16469046 (Version 2)
Quarter: 2019Q3

REPORT INFORMATION
  Report Type: Spontaneous
  Country: US (occurrence: US)
  Receive Date: 20190624
  Receipt Date: 20190724
  Transmission Date: 20191004
  Serious: Yes (Hospitalization)
  Sender: FDA-Public Use
  Company Number: US-PFIZER INC-2019264965

PATIENT
  Age: 54 Year
  Sex: Male

DRUGS (1)
  1. CHANTIX [Suspect]
     Active Substance: VARENICLINE TARTRATE
     Indication: SMOKING CESSATION THERAPY
     Dosage: 1 MG, 2X/DAY
     Route: 048
     Dates: start: 2018, end: 201905

REACTIONS (11)
  - Pain [Unknown]
  - Malaise [Unknown]
  - Asthenia [Unknown]
  - Diabetic ketoacidosis [Unknown]
  - Depression [Unknown]
  - Nausea [Unknown]
  - Oesophagitis [Unknown]
  - Pallor [Unknown]
  - Drug hypersensitivity [Unknown]
  - Suicidal ideation [Recovering/Resolving]
  - Colitis [Unknown]

NARRATIVE: CASE EVENT DATE: 201905
